FAERS Safety Report 4988409-9 (Version None)
Quarter: 2006Q2

REPORT INFORMATION
  Report Type: 
  Country: None (occurrence: None)
  Receive Date: 20060502
  Receipt Date: 20060303
  Transmission Date: 20061013
  Serious: Yes (Death, Life-Threatening, Hospitalization)
  Sender: FDA-Public Use
  Company Number: JP-AVENTIS-200610694JP

PATIENT
  Age: 75 Year
  Sex: Male

DRUGS (9)
  1. AMARYL [Suspect]
     Indication: DIABETES MELLITUS
     Route: 048
     Dates: start: 20020401, end: 20060301
  2. UFT [Suspect]
     Indication: LARGE INTESTINE CARCINOMA
     Route: 048
     Dates: start: 20030214, end: 20060301
  3. KRESTIN [Suspect]
     Indication: LARGE INTESTINE CARCINOMA
     Route: 048
     Dates: start: 20030214, end: 20060301
  4. HARNAL [Concomitant]
     Indication: BENIGN PROSTATIC HYPERPLASIA
     Route: 048
     Dates: start: 20030214, end: 20060301
  5. UBRETID [Concomitant]
     Indication: NEUROGENIC BLADDER
     Route: 048
     Dates: start: 20030214, end: 20060301
  6. CEREKINON [Concomitant]
     Indication: GASTRITIS
     Route: 048
     Dates: start: 20030214, end: 20060301
  7. GASMOTIN [Concomitant]
     Indication: GASTRITIS
     Route: 048
     Dates: start: 20030214, end: 20060301
  8. MICARDIS [Concomitant]
     Indication: HYPERTENSION
     Route: 048
     Dates: end: 20060301
  9. NORVASC [Concomitant]
     Indication: HYPERTENSION
     Route: 048
     Dates: start: 20020401, end: 20060301

REACTIONS (7)
  - CARDIO-RESPIRATORY ARREST [None]
  - DRUG LEVEL INCREASED [None]
  - HAEMORRHAGE SUBCUTANEOUS [None]
  - MALAISE [None]
  - MULTI-ORGAN FAILURE [None]
  - RENAL FAILURE [None]
  - RHABDOMYOLYSIS [None]
